FAERS Safety Report 5887350-7 (Version None)
Quarter: 2008Q3

REPORT INFORMATION
  Report Type: 
  Country: None (occurrence: None)
  Receive Date: 20080918
  Receipt Date: 20080811
  Transmission Date: 20090109
  Serious: Yes (Life-Threatening, Hospitalization, Disabling)
  Sender: FDA-Public Use
  Company Number: US-JNJFOC-20080103866

PATIENT
  Sex: Female
  Weight: 81.65 kg

DRUGS (1)
  1. ORTHO EVRA [Suspect]
     Indication: CONTRACEPTION
     Route: 062

REACTIONS (3)
  - ANOXIC ENCEPHALOPATHY [None]
  - CARDIAC ARREST [None]
  - MYOCARDIAL INFARCTION [None]
